FAERS Safety Report 4761910-9 (Version None)
Quarter: 2005Q3

REPORT INFORMATION
  Report Type: 
  Country: None (occurrence: None)
  Receive Date: 20050831
  Receipt Date: 20050317
  Transmission Date: 20060218
  Serious: Yes (Hospitalization)
  Sender: FDA-Public Use
  Company Number: 2005046274

PATIENT
  Age: 73 Year
  Sex: Male
  Weight: 99.7913 kg

DRUGS (4)
  1. TOLTERODINE TARTRATE [Suspect]
     Indication: ILL-DEFINED DISORDER
     Dosage: 4 MG (4 MG, 1) ORAL
     Route: 048
  2. FUROSEMIDE [Concomitant]
  3. ANTI-DIABETICS (ANTI-DIABETICS) [Concomitant]
  4. DIURETICS (DIURETICS) [Concomitant]

REACTIONS (3)
  - DRUG EFFECT DECREASED [None]
  - OEDEMA PERIPHERAL [None]
  - POLLAKIURIA [None]
